FAERS Safety Report 5110915-7 (Version None)
Quarter: 2006Q3

REPORT INFORMATION
  Report Type: 
  Country: None (occurrence: None)
  Receive Date: 20060919
  Receipt Date: 20060904
  Transmission Date: 20061208
  Serious: Yes (Other)
  Sender: FDA-Public Use
  Company Number: 2006097941

PATIENT
  Age: 67 Year
  Sex: Male
  Weight: 61 kg

DRUGS (2)
  1. LYRICA [Suspect]
     Indication: NEURALGIA
     Dosage: 450 MG (150 MG,3 IN 1 D), ORAL
     Route: 048
     Dates: start: 20060715, end: 20060805
  2. COTRAMAL           (TRAMADOL HYDROCHLORIDE) [Concomitant]

REACTIONS (3)
  - PRODUCTIVE COUGH [None]
  - PULMONARY HYPERTENSION [None]
  - WHEEZING [None]
